FAERS Safety Report 9185267 (Version 2)
Quarter: 2013Q3

REPORT INFORMATION
  Report Type: Spontaneous
  Country: US (occurrence: US)
  Receive Date: 20121031
  Receipt Date: 20130812
  Transmission Date: 20140515
  Serious: Yes (Hospitalization)
  Sender: FDA-Public Use
  Company Number: US-BAYER-2012-113187

PATIENT
  Age: 20 Year
  Sex: Female
  Weight: 57.6 kg

DRUGS (7)
  1. BEYAZ [Suspect]
  2. LOESTRIN FE [Concomitant]
  3. DILANTIN [Concomitant]
  4. FIORICET [Concomitant]
  5. KEPPRA [Concomitant]
     Indication: CONVULSION
  6. ZOCOR [Concomitant]
  7. GARDASIL [Concomitant]

REACTIONS (1)
  - Intracranial venous sinus thrombosis [Recovered/Resolved]
